FAERS Safety Report 5421079-4 (Version None)
Quarter: 2007Q3

REPORT INFORMATION
  Report Type: 
  Country: None (occurrence: None)
  Receive Date: 20070821
  Receipt Date: 20070813
  Transmission Date: 20080115
  Serious: Yes (Hospitalization)
  Sender: FDA-Public Use
  Company Number: D0054273A

PATIENT
  Age: 26 Year
  Sex: Female
  Weight: 50 kg

DRUGS (4)
  1. SEROXAT [Suspect]
     Dosage: 20MG SEE DOSAGE TEXT
     Route: 048
     Dates: start: 20070813, end: 20070813
  2. LYSANXIA [Suspect]
     Dosage: 10MG SEE DOSAGE TEXT
     Route: 048
     Dates: start: 20070813, end: 20070813
  3. MIRTAZAPINE [Suspect]
     Dosage: 15MG SEE DOSAGE TEXT
     Route: 048
     Dates: start: 20070813, end: 20070813
  4. TRANXENE [Suspect]
     Dosage: 10MG SEE DOSAGE TEXT
     Route: 048
     Dates: start: 20070813, end: 20070813

REACTIONS (3)
  - SOMNOLENCE [None]
  - SUICIDE ATTEMPT [None]
  - VOMITING [None]
